FAERS Safety Report 5402453-9 (Version None)
Quarter: 2007Q3

REPORT INFORMATION
  Report Type: 
  Country: None (occurrence: None)
  Receive Date: 20070801
  Receipt Date: 20070607
  Transmission Date: 20080115
  Serious: Yes (Hospitalization)
  Sender: FDA-Public Use
  Company Number: US-PURDUE-USA_2007_0028441

PATIENT
  Sex: Male

DRUGS (1)
  1. OXYCONTIN [Suspect]
     Indication: SPINAL COLUMN STENOSIS
     Dosage: UNK MG, UNK
     Route: 048
     Dates: start: 19990101, end: 20020101

REACTIONS (1)
  - PSYCHOTIC DISORDER [None]
